FAERS Safety Report 23816490 (Version 1)
Quarter: 2024Q2

REPORT INFORMATION
  Report Type: Spontaneous
  Country: US (occurrence: US)
  Receive Date: 20240503
  Receipt Date: 20240503
  Transmission Date: 20240716
  Serious: No
  Sender: FDA-Public Use
  Company Number: US-SANDOZ-SDZ2024US045002

PATIENT
  Sex: Female

DRUGS (1)
  1. OMNITROPE [Suspect]
     Active Substance: SOMATROPIN
     Indication: Cognitive disorder
     Dosage: 10 MG, ONCE DAILY
     Route: 030

REACTIONS (2)
  - Cognitive disorder [Unknown]
  - Drug ineffective [Unknown]
